FAERS Safety Report 8118771-X (Version None)
Quarter: 2012Q1

REPORT INFORMATION
  Report Type: 
  Country: None (occurrence: None)
  Receive Date: 20120202
  Receipt Date: 20120111
  Transmission Date: 20120608
  Serious: Yes (Hospitalization)
  Sender: FDA-Public Use
  Company Number: 2008-0769

PATIENT
  Age: 16 Year
  Sex: Male
  Weight: 57.7 kg

DRUGS (1)
  1. INCRELEX [Suspect]
     Indication: BODY HEIGHT BELOW NORMAL
     Dosage: 90 UG/KG, BID, SUBCUTANEOUS
     Route: 058
     Dates: start: 20110327

REACTIONS (2)
  - EPIPHYSIOLYSIS [None]
  - OSTEOCHONDROSIS [None]
